FAERS Safety Report 5441500-5 (Version None)
Quarter: 2007Q3

REPORT INFORMATION
  Report Type: 
  Country: None (occurrence: None)
  Receive Date: 20070829
  Receipt Date: 20070820
  Transmission Date: 20080115
  Serious: No
  Sender: FDA-Public Use
  Company Number: TPG2007A00371

PATIENT
  Sex: Male

DRUGS (8)
  1. LANSOPRAZOLE [Suspect]
     Indication: DRUG USE FOR UNKNOWN INDICATION
     Dosage: PER ORAL
     Route: 048
  2. SORTIS (ATORVASTATIN CALCIUM) (TABLETS) [Concomitant]
  3. DELIX (RAMIPRIL) (TABLETS) [Concomitant]
  4. CONCOR (BISOPROLOL FUMARATE) (TABLETS) [Concomitant]
  5. TRAMADOL HCL [Concomitant]
  6. MARCUMAR (PHENPROCOUMON) (3 MILLIGRAM, TABLETS) [Concomitant]
  7. MUSARIL (TETRAZEPAM) (50 MILLIGRAM, TABLETS) [Concomitant]
  8. LIRIKA (UNKNOWN) (UNKNOWN) [Concomitant]

REACTIONS (1)
  - GLAUCOMA [None]
